FAERS Safety Report 6914888-3 (Version None)
Quarter: 2010Q3

REPORT INFORMATION
  Report Type: 
  Country: None (occurrence: None)
  Receive Date: 20100809
  Receipt Date: 20100713
  Transmission Date: 20110219
  Serious: Yes (Other)
  Sender: FDA-Public Use
  Company Number: PHHY2010DE49982

PATIENT
  Age: 67 Year
  Sex: Female

DRUGS (1)
  1. PROVAS COMP [Suspect]
     Dosage: UNK

REACTIONS (3)
  - C-REACTIVE PROTEIN INCREASED [None]
  - POLYMYALGIA RHEUMATICA [None]
  - RED BLOOD CELL SEDIMENTATION RATE INCREASED [None]
